FAERS Safety Report 12825119 (Version 1)
Quarter: 2016Q4

REPORT INFORMATION
  Report Type: Spontaneous
  Country: US (occurrence: US)
  Receive Date: 20161007
  Receipt Date: 20161007
  Transmission Date: 20170207
  Serious: Yes (Other)
  Sender: FDA-Public Use
  Company Number: US-BRISTOL-MYERS SQUIBB COMPANY-BMS-2016-082612

PATIENT
  Sex: Female
  Weight: 77.1 kg

DRUGS (2)
  1. OPDIVO [Suspect]
     Active Substance: NIVOLUMAB
     Dosage: UNK
     Route: 042
     Dates: start: 20160901
  2. OPDIVO [Suspect]
     Active Substance: NIVOLUMAB
     Indication: OVARIAN CANCER
     Dosage: UNK
     Route: 042
     Dates: start: 20160818

REACTIONS (7)
  - Hyponatraemia [Unknown]
  - Abdominal distension [Unknown]
  - Product use issue [Unknown]
  - Hypothyroidism [Unknown]
  - Cachexia [Unknown]
  - Malignant neoplasm progression [Unknown]
  - Performance status decreased [Unknown]
